FAERS Safety Report 20699666 (Version 3)
Quarter: 2022Q2

REPORT INFORMATION
  Report Type: Spontaneous
  Country: US (occurrence: US)
  Receive Date: 20220412
  Receipt Date: 20220416
  Transmission Date: 20220720
  Serious: Yes (Death, Hospitalization, Other)
  Sender: FDA-Public Use
  Company Number: US-UNITED THERAPEUTICS-UNT-2022-007406

PATIENT
  Age: 41 Year
  Sex: Male
  Weight: 90.703 kg

DRUGS (4)
  1. REMODULIN [Suspect]
     Active Substance: TREPROSTINIL
     Indication: Pulmonary arterial hypertension
     Dosage: UNK, CONTINUING
     Route: 058
     Dates: start: 20200515
  2. REMODULIN [Suspect]
     Active Substance: TREPROSTINIL
     Dosage: 0.121 ?G/KG, CONTINUING
     Route: 058
  3. METHAMPHETAMINE [Suspect]
     Active Substance: METHAMPHETAMINE
     Indication: Product used for unknown indication
     Dosage: UNK
     Route: 065
  4. ADEMPAS [Concomitant]
     Active Substance: RIOCIGUAT
     Indication: Product used for unknown indication
     Dosage: UNK
     Route: 065

REACTIONS (9)
  - Death [Fatal]
  - Respiratory distress [Unknown]
  - Overdose [Unknown]
  - Drug withdrawal syndrome [Unknown]
  - Weight increased [Unknown]
  - Generalised oedema [Unknown]
  - Erythema [Unknown]
  - Gait disturbance [Unknown]
  - Hypotension [Unknown]

NARRATIVE: CASE EVENT DATE: 20220401
